FAERS Safety Report 18318263 (Version 1)
Quarter: 2020Q3

REPORT INFORMATION
  Report Type: Spontaneous
  Country: DK (occurrence: DK)
  Receive Date: 20200928
  Receipt Date: 20200928
  Transmission Date: 20201103
  Serious: Yes (Hospitalization, Disabling)
  Sender: FDA-Public Use
  Company Number: DK-TEVA-2020-DK-1831084

PATIENT
  Sex: Male

DRUGS (6)
  1. RITUXIMAB. [Concomitant]
     Active Substance: RITUXIMAB
     Indication: PRODUCT USED FOR UNKNOWN INDICATION
     Dosage: DOSE: UNKNOWN?STRENGTH: UNKNOWN
     Dates: start: 201601
  2. PROGRAF [Concomitant]
     Active Substance: TACROLIMUS
     Indication: PRODUCT USED FOR UNKNOWN INDICATION
     Dosage: STRENGTH: UNKNOWN?DOSAGE: UNKNOWN
  3. FURIX [Concomitant]
     Indication: DIURETIC THERAPY
     Dosage: STRENGTH: UNKNOWN?DOSAGE: UNKNOWN
     Route: 048
  4. MANDOLGIN [Concomitant]
     Active Substance: TRAMADOL
     Indication: PAIN
     Dosage: STRENGTH: UNKNOWN?DOSAGE: UNKNOWN
     Route: 048
     Dates: start: 20130406
  5. PREDNISOLONE. [Suspect]
     Active Substance: PREDNISOLONE
     Indication: GLOMERULONEPHRITIS MINIMAL LESION
     Dosage: STRENGTH: UNKNOWN?DOSAGE: VARIATION, STARTED AT 75 MG DAILY. LOWEST DOSE 5 MG
     Route: 048
     Dates: start: 20130109, end: 20160501
  6. PREDNISOLONE. [Suspect]
     Active Substance: PREDNISOLONE
     Dosage: STRENGTH: UNKNOWN?DOSAGE: STARTED AT 80 MG DAILY.
     Route: 048
     Dates: start: 20161108, end: 20170602

REACTIONS (8)
  - Pain in extremity [Unknown]
  - Arthralgia [Unknown]
  - Diabetes mellitus [Recovered/Resolved]
  - Addison^s disease [Recovered/Resolved]
  - Back disorder [Not Recovered/Not Resolved]
  - Gout [Unknown]
  - Osteonecrosis [Recovered/Resolved]
  - Arthralgia [Unknown]

NARRATIVE: CASE EVENT DATE: 201310
